FAERS Safety Report 25110824 (Version 1)
Quarter: 2025Q1

REPORT INFORMATION
  Report Type: Report from Study
  Country: JP (occurrence: JP)
  Receive Date: 20250324
  Receipt Date: 20250324
  Transmission Date: 20250409
  Serious: Yes (Other)
  Sender: ROCHE
  Company Number: JP-CHUGAI-2025008386

PATIENT
  Weight: 75.6 kg

DRUGS (15)
  1. RITUXIMAB [Suspect]
     Active Substance: RITUXIMAB
     Indication: Diffuse large B-cell lymphoma
     Dosage: 700 MILLIGRAM, QD
     Route: 042
     Dates: start: 20240805, end: 20240805
  2. RITUXIMAB [Suspect]
     Active Substance: RITUXIMAB
     Dosage: 700 MILLIGRAM, QD
     Route: 042
     Dates: start: 20240827, end: 20240827
  3. RITUXIMAB [Suspect]
     Active Substance: RITUXIMAB
     Dosage: 700 MILLIGRAM, QD
     Route: 042
     Dates: start: 20240917, end: 20240917
  4. POLIVY [Suspect]
     Active Substance: POLATUZUMAB VEDOTIN-PIIQ
     Indication: Diffuse large B-cell lymphoma
     Dosage: 135 MILLIGRAM, QD
     Route: 042
     Dates: start: 20240805, end: 20240805
  5. POLIVY [Suspect]
     Active Substance: POLATUZUMAB VEDOTIN-PIIQ
     Dosage: 130 MILLIGRAM, QD
     Route: 042
     Dates: start: 20240827, end: 20240827
  6. POLIVY [Suspect]
     Active Substance: POLATUZUMAB VEDOTIN-PIIQ
     Dosage: 130 MILLIGRAM, QD
     Route: 042
     Dates: start: 20240917, end: 20240917
  7. METHYLPREDNISOLONE SODIUM SUCCINATE [Suspect]
     Active Substance: METHYLPREDNISOLONE SODIUM SUCCINATE
     Indication: Diffuse large B-cell lymphoma
     Dosage: 500 MILLIGRAM, QD
     Route: 042
     Dates: start: 20240805, end: 20240805
  8. METHYLPREDNISOLONE SODIUM SUCCINATE [Suspect]
     Active Substance: METHYLPREDNISOLONE SODIUM SUCCINATE
     Dosage: 500 MILLIGRAM, QD
     Route: 042
     Dates: start: 20240827, end: 20240827
  9. METHYLPREDNISOLONE SODIUM SUCCINATE [Suspect]
     Active Substance: METHYLPREDNISOLONE SODIUM SUCCINATE
     Dosage: 500 MILLIGRAM, QD
     Route: 042
     Dates: start: 20240917, end: 20240917
  10. CYCLOPHOSPHAMIDE [Suspect]
     Active Substance: CYCLOPHOSPHAMIDE
     Indication: Diffuse large B-cell lymphoma
     Dosage: 1350 MILLIGRAM, QD
     Route: 042
     Dates: start: 20240805, end: 20240805
  11. CYCLOPHOSPHAMIDE [Suspect]
     Active Substance: CYCLOPHOSPHAMIDE
     Dosage: 1350 MILLIGRAM, QD
     Route: 042
     Dates: start: 20240827, end: 20240827
  12. CYCLOPHOSPHAMIDE [Suspect]
     Active Substance: CYCLOPHOSPHAMIDE
     Dosage: 1350 MILLIGRAM, QD
     Route: 042
     Dates: start: 20240917, end: 20240917
  13. DOXORUBICIN HYDROCHLORIDE [Suspect]
     Active Substance: DOXORUBICIN HYDROCHLORIDE
     Indication: Diffuse large B-cell lymphoma
     Dosage: 90 MILLIGRAM, QD
     Route: 042
     Dates: start: 20240805, end: 20240805
  14. DOXORUBICIN HYDROCHLORIDE [Suspect]
     Active Substance: DOXORUBICIN HYDROCHLORIDE
     Dosage: 90 MILLIGRAM, QD
     Route: 042
     Dates: start: 20240827, end: 20240827
  15. DOXORUBICIN HYDROCHLORIDE [Suspect]
     Active Substance: DOXORUBICIN HYDROCHLORIDE
     Dosage: 90 MILLIGRAM, QD
     Route: 042
     Dates: start: 20240917, end: 20240917

REACTIONS (6)
  - Diarrhoea [Unknown]
  - Cardiac failure [Unknown]
  - Constipation [Unknown]
  - Ileus paralytic [Unknown]
  - Febrile neutropenia [Unknown]
  - Pneumonia [Unknown]
